FAERS Safety Report 5586085-8 (Version None)
Quarter: 2007Q4

REPORT INFORMATION
  Report Type: 
  Country: None (occurrence: None)
  Receive Date: 20071205
  Receipt Date: 20070410
  Transmission Date: 20080405
  Serious: Yes (Other)
  Sender: FDA-Public Use
  Company Number: HQWYE222111APR07

PATIENT
  Age: 49 Year
  Sex: Female
  Weight: 68.1 kg

DRUGS (3)
  1. EFFEXOR XR [Suspect]
     Indication: DEPRESSION
     Dosage: ^CURRENTLY BEING WEANED OFF^, ORAL ; 600 MG 1X PER 1 DAY, ORAL
     Route: 048
     Dates: start: 20060101, end: 20070101
  2. EFFEXOR XR [Suspect]
     Indication: DEPRESSION
     Dosage: ^CURRENTLY BEING WEANED OFF^, ORAL ; 600 MG 1X PER 1 DAY, ORAL
     Route: 048
     Dates: start: 20070101
  3. OXYCONTIN [Concomitant]

REACTIONS (1)
  - CARDIAC FAILURE [None]
